FAERS Safety Report 4485074-4 (Version None)
Quarter: 2004Q4

REPORT INFORMATION
  Report Type: 
  Country: None (occurrence: None)
  Receive Date: 20040921
  Receipt Date: 20031030
  Transmission Date: 20050328
  Serious: Yes (Death, Hospitalization)
  Sender: FDA-Public Use
  Company Number: 163-20785-03040132(1)

PATIENT
  Age: 67 Year
  Sex: Male

DRUGS (9)
  1. THALOMID [Suspect]
     Indication: MULTIPLE MYELOMA
     Dosage: 400 MG, QD, ORAL
     Route: 048
     Dates: start: 20031029, end: 20030106
  2. MELPHALAN (MELPHALAN) (INJECTION) [Suspect]
     Indication: MULTIPLE MYELOMA
     Dosage: 360 MG, INTRAVENOUS
     Route: 042
     Dates: start: 20030217
  3. VINCRISTINE [Concomitant]
  4. ADRIAMYCIN PFS [Concomitant]
  5. DEXAMETHASONE [Concomitant]
  6. CYTOXAN [Concomitant]
  7. ETOPOSIDE [Concomitant]
  8. CISPLATIN [Concomitant]
  9. PROCRIT [Concomitant]

REACTIONS (19)
  - ACUTE RESPIRATORY DISTRESS SYNDROME [None]
  - BLOOD CREATININE INCREASED [None]
  - CARDIAC ENZYMES INCREASED [None]
  - CONFUSIONAL STATE [None]
  - DEATH [None]
  - FLUID OVERLOAD [None]
  - HYPERGLYCAEMIA [None]
  - HYPERKALAEMIA [None]
  - HYPOKALAEMIA [None]
  - HYPOTENSION [None]
  - METABOLIC ENCEPHALOPATHY [None]
  - MYOCARDIAL INFARCTION [None]
  - NEUTROPENIA [None]
  - PNEUMONIA [None]
  - RENAL FAILURE [None]
  - STAPHYLOCOCCAL BACTERAEMIA [None]
  - STAPHYLOCOCCAL INFECTION [None]
  - SUPRAVENTRICULAR TACHYCARDIA [None]
  - THROMBOCYTOPENIA [None]
